FAERS Safety Report 9208190 (Version 2)
Quarter: 2013Q2

REPORT INFORMATION
  Report Type: Report from Study
  Country: US (occurrence: US)
  Receive Date: 20130403
  Receipt Date: 20130415
  Transmission Date: 20140414
  Serious: Yes (Hospitalization)
  Sender: FDA-Public Use
  Company Number: US-ACTELION-A-NJ2013-81551

PATIENT
  Age: 72 Year
  Sex: Female

DRUGS (2)
  1. TRACLEER [Suspect]
     Indication: PULMONARY ARTERIAL HYPERTENSION
     Dosage: UNK
     Route: 048
     Dates: start: 200703
  2. VENTAVIS [Suspect]
     Indication: PULMONARY ARTERIAL HYPERTENSION
     Dosage: 5 MCG, 6-9 DAILY
     Route: 055
     Dates: start: 200508

REACTIONS (4)
  - Cholecystectomy [Recovering/Resolving]
  - Gallbladder disorder [Recovering/Resolving]
  - Abdominal discomfort [Recovered/Resolved]
  - Pneumonia [Recovering/Resolving]
